FAERS Safety Report 6196874-7 (Version None)
Quarter: 2009Q2

REPORT INFORMATION
  Report Type: 
  Country: None (occurrence: None)
  Receive Date: 20090520
  Receipt Date: 20090519
  Transmission Date: 20091009
  Serious: Yes (Hospitalization)
  Sender: FDA-Public Use
  Company Number: US-BRISTOL-MYERS SQUIBB COMPANY-13632450

PATIENT
  Age: 59 Year
  Sex: Male
  Weight: 82 kg

DRUGS (3)
  1. ERBITUX [Suspect]
     Indication: TONGUE NEOPLASM MALIGNANT STAGE UNSPECIFIED
     Dosage: WEEK1:LOADING DOSE 400MG/M2 IV OVER 2H;WEEK2-27:250MG/M2 ONCE WEEKLY IV OVER 1H;START DATE:29NOV06.
     Route: 042
     Dates: start: 20061226, end: 20061226
  2. CISPLATIN [Suspect]
     Indication: TONGUE NEOPLASM MALIGNANT STAGE UNSPECIFIED
     Dosage: 100MG/M2 GIVEN ON DAY1 OF RADIATION THERAPY + DAY 22,INFUSED OVER 1-2HOURS. START DATE: 26NOV06.
     Dates: start: 20061226, end: 20061226
  3. RADIATION THERAPY [Suspect]
     Indication: TONGUE NEOPLASM MALIGNANT STAGE UNSPECIFIED
     Dosage: 1 DF=36 GY;EXTERNAL BEAM,IMRT;NO.OF FRACTIONS:18. 70GY:35FRACTION 6WKS:1BID WK1-5. ELASPSED:26D
     Dates: start: 20061227, end: 20061227

REACTIONS (4)
  - DEHYDRATION [None]
  - MUSCULOSKELETAL CHEST PAIN [None]
  - NAUSEA [None]
  - VOMITING [None]
